FAERS Safety Report 8996779 (Version 1)
Quarter: 2012Q4

REPORT INFORMATION
  Report Type: Spontaneous
  Country: US (occurrence: None)
  Receive Date: 20121228
  Receipt Date: 20121228
  Transmission Date: 20130627
  Serious: No
  Sender: FDA-Public Use
  Company Number: None

PATIENT
  Age: 81 Year
  Sex: Female
  Weight: 49.44 kg

DRUGS (1)
  1. PRADAXA 150MG BOEHRINGER INGLEHEIM [Suspect]
     Indication: ATRIAL FIBRILLATION
     Dates: start: 201203

REACTIONS (6)
  - Arthralgia [None]
  - Arthralgia [None]
  - Musculoskeletal pain [None]
  - Throat tightness [None]
  - Haemoptysis [None]
  - Asthenia [None]
